FAERS Safety Report 9856151 (Version 1)
Quarter: 2014Q1

REPORT INFORMATION
  Report Type: Report from Study
  Country: US (occurrence: US)
  Receive Date: 20140130
  Receipt Date: 20140130
  Transmission Date: 20141002
  Serious: Yes (Other)
  Sender: FDA-Public Use
  Company Number: US-MPIJNJ-2014MPI000278

PATIENT
  Sex: 0

DRUGS (5)
  1. VELCADE [Suspect]
     Indication: PRODUCT USED FOR UNKNOWN INDICATION
  2. CARMUSTINE [Suspect]
     Indication: PRODUCT USED FOR UNKNOWN INDICATION
  3. ETOPOSIDE [Suspect]
     Indication: PRODUCT USED FOR UNKNOWN INDICATION
  4. CYTARABINE [Suspect]
     Indication: PRODUCT USED FOR UNKNOWN INDICATION
  5. MELPHALAN [Suspect]
     Indication: PRODUCT USED FOR UNKNOWN INDICATION

REACTIONS (2)
  - Jejunal perforation [Unknown]
  - Gastrointestinal necrosis [None]
